FAERS Safety Report 24968971 (Version 1)
Quarter: 2025Q1

REPORT INFORMATION
  Report Type: Report from Study
  Country: US (occurrence: US)
  Receive Date: 20250214
  Receipt Date: 20250214
  Transmission Date: 20250409
  Serious: No
  Sender: AMNEAL
  Company Number: US-AMNEAL PHARMACEUTICALS-2024-AMRX-03937

PATIENT
  Age: 70 Year
  Sex: Female
  Weight: 52.154 kg

DRUGS (1)
  1. CARBIDOPA\LEVODOPA [Suspect]
     Active Substance: CARBIDOPA\LEVODOPA
     Indication: Parkinson^s disease
     Dosage: (95/23.75 MG) 2 CAPSULES, TID
     Route: 048

REACTIONS (2)
  - Motor dysfunction [Unknown]
  - Alopecia [Unknown]

NARRATIVE: CASE EVENT DATE: 20241216
